FAERS Safety Report 25594004 (Version 1)
Quarter: 2025Q3

REPORT INFORMATION
  Report Type: Spontaneous
  Country: CN (occurrence: CN)
  Receive Date: 20250723
  Receipt Date: 20250723
  Transmission Date: 20251021
  Serious: Yes (Hospitalization, Other)
  Sender: ABBVIE
  Company Number: CN-PFIZER INC-202500141911

PATIENT
  Age: 84 Year
  Sex: Male

DRUGS (16)
  1. AVIBACTAM SODIUM\CEFTAZIDIME [Suspect]
     Active Substance: AVIBACTAM SODIUM\CEFTAZIDIME
     Indication: Klebsiella infection
     Route: 065
     Dates: start: 20250618, end: 20250628
  2. AVIBACTAM SODIUM\CEFTAZIDIME [Suspect]
     Active Substance: AVIBACTAM SODIUM\CEFTAZIDIME
     Indication: Klebsiella infection
     Route: 065
     Dates: start: 20250707, end: 20250712
  3. LINEZOLID [Concomitant]
     Active Substance: LINEZOLID
     Indication: Product used for unknown indication
     Dosage: 0.6 G, Q12H
     Dates: start: 20250710, end: 20250712
  4. SPIRONOLACTONE [Concomitant]
     Active Substance: SPIRONOLACTONE
     Indication: Atrial fibrillation
     Dosage: 20 MG, 1X/DAY
  5. VANCOMYCIN [Concomitant]
     Active Substance: VANCOMYCIN
     Indication: Product used for unknown indication
     Dosage: 1 G, Q12H
     Dates: start: 20250630, end: 20250706
  6. THYMALFASIN [Concomitant]
     Active Substance: THYMALFASIN
     Indication: Product used for unknown indication
     Dosage: 1.6 MG, 2X/WEEK
     Dates: start: 20250710, end: 20250712
  7. FU LU SHI [Concomitant]
     Indication: Respiratory therapy
     Dates: start: 20250610, end: 20250712
  8. METRONIDAZOLE [Concomitant]
     Active Substance: METRONIDAZOLE
     Indication: Product used for unknown indication
     Dates: start: 20250707, end: 20250709
  9. IMMUNE GLOBULIN NOS [Concomitant]
     Active Substance: IMMUNE GLOBULIN NOS
     Indication: Product used for unknown indication
     Dosage: 0.5 G, 1X/DAY
     Dates: start: 20250703, end: 20250707
  10. ALBUMIN HUMAN [Concomitant]
     Active Substance: ALBUMIN HUMAN
     Indication: Product used for unknown indication
     Dosage: 10 G, 1X/DAY
     Dates: start: 20250623, end: 20250627
  11. DOXYCYCLINE [Concomitant]
     Active Substance: DOXYCYCLINE
     Indication: Product used for unknown indication
     Dosage: 0.1 G, Q12H
     Dates: start: 20250706, end: 20250709
  12. ATENOLOL [Concomitant]
     Active Substance: ATENOLOL
     Indication: Atrial fibrillation
     Dosage: 50 MG, 1X/DAY
  13. FLUCONAZOLE [Concomitant]
     Active Substance: FLUCONAZOLE
     Indication: Product used for unknown indication
     Dosage: 0.2 G, QD
     Route: 042
     Dates: start: 20250710, end: 20250712
  14. DIFLUCAN [Concomitant]
     Active Substance: FLUCONAZOLE
     Indication: Product used for unknown indication
     Dosage: 0.1 G, BID
     Dates: start: 20250625, end: 20250706
  15. AMBROXOL [Concomitant]
     Active Substance: AMBROXOL
     Indication: Productive cough
     Dates: start: 20250610, end: 20250712
  16. XARELTO [Concomitant]
     Active Substance: RIVAROXABAN
     Indication: Atrial fibrillation
     Dosage: 15 MG, 1X/DAY

REACTIONS (10)
  - Drug effect less than expected [Unknown]
  - Staphylococcal infection [Unknown]
  - Epstein-Barr virus infection [Unknown]
  - Corynebacterium infection [Unknown]
  - Cytomegalovirus infection [Unknown]
  - Enterococcal infection [Unknown]
  - Opportunistic infection [Unknown]
  - Candida infection [Unknown]
  - Urinary tract infection [Unknown]
  - Urinary tract injury [Unknown]

NARRATIVE: CASE EVENT DATE: 20250625
